FAERS Safety Report 13227542 (Version 1)
Quarter: 2017Q1

REPORT INFORMATION
  Report Type: Spontaneous
  Country: BR (occurrence: BR)
  Receive Date: 20170213
  Receipt Date: 20170213
  Transmission Date: 20170428
  Serious: Yes (Other)
  Sender: FDA-Public Use
  Company Number: PHHY2017BR021262

PATIENT
  Sex: Female
  Weight: 70 kg

DRUGS (3)
  1. DEPAKENE [Concomitant]
     Active Substance: VALPROIC ACID
     Indication: SEIZURE
     Dosage: 30 ML, BID VIA GASTRIC PROBE
     Route: 050
  2. PREGABALINA [Concomitant]
     Active Substance: PREGABALIN
     Indication: PAIN
     Dosage: 1 DF, QD VIA GASTRIC PROBE
     Route: 050
  3. CARBAMAZEPINE. [Suspect]
     Active Substance: CARBAMAZEPINE
     Indication: SEIZURE
     Dosage: 50 ML, QD VIA GASTRIC PROBE
     Route: 050

REACTIONS (4)
  - Wrong technique in product usage process [Unknown]
  - Diabetes mellitus [Unknown]
  - Thrombosis [Unknown]
  - Insomnia [Unknown]
